FAERS Safety Report 9061233 (Version 1)
Quarter: 2013Q1

REPORT INFORMATION
  Report Type: Spontaneous
  Country: US (occurrence: None)
  Receive Date: 20130207
  Receipt Date: 20130207
  Transmission Date: 20140127
  Serious: Yes (Death, Life-Threatening, Hospitalization, Disabling)
  Sender: FDA-Public Use
  Company Number: None

PATIENT
  Age: 31 Year
  Sex: Male
  Weight: 108.41 kg

DRUGS (1)
  1. CLOMIPRAMINE MYLAN ` [Suspect]
     Indication: OBSESSIVE-COMPULSIVE DISORDER
     Dosage: 4 CAPSULES, EVERY NIGHT
     Route: 048

REACTIONS (3)
  - Convulsion [None]
  - Heart rate increased [None]
  - Multi-organ failure [None]
